FAERS Safety Report 6657579-9 (Version None)
Quarter: 2010Q1

REPORT INFORMATION
  Report Type: 
  Country: None (occurrence: None)
  Receive Date: 20100330
  Receipt Date: 20100317
  Transmission Date: 20100710
  Serious: No
  Sender: FDA-Public Use
  Company Number: US-B.I. PHARMACEUTICALS,INC./RIDGEFIELD-2010-BP-02307BP

PATIENT
  Age: 72 Year
  Sex: Female

DRUGS (3)
  1. SPIRIVA [Suspect]
     Indication: DYSPNOEA
     Route: 055
  2. SPIRIVA [Suspect]
     Indication: INSPIRATORY CAPACITY INCREASED
  3. SPIRIVA [Suspect]

REACTIONS (5)
  - BALANCE DISORDER [None]
  - DRUG INEFFECTIVE [None]
  - DYSPNOEA [None]
  - FALL [None]
  - LUNG DISORDER [None]
